FAERS Safety Report 7659796-8 (Version None)
Quarter: 2011Q3

REPORT INFORMATION
  Report Type: 
  Country: None (occurrence: None)
  Receive Date: 20110805
  Receipt Date: 20110131
  Transmission Date: 20111222
  Serious: No
  Sender: FDA-Public Use
  Company Number: US-ABBOTT-11P-163-0702748-00

PATIENT
  Sex: Male
  Weight: 82.628 kg

DRUGS (1)
  1. DEPAKOTE ER [Suspect]
     Indication: CONVULSION
     Dosage: 2 TABS OF 500 MG + 1 TAB OF 250 MG
     Dates: start: 20021101

REACTIONS (1)
  - ALOPECIA [None]
